FAERS Safety Report 17984461 (Version 1)
Quarter: 2020Q3

REPORT INFORMATION
  Report Type: Spontaneous
  Country: JP (occurrence: JP)
  Receive Date: 20200706
  Receipt Date: 20200706
  Transmission Date: 20201103
  Serious: Yes (Other)
  Sender: FDA-Public Use
  Company Number: JP-MYLANLABS-2020M1060594

PATIENT
  Sex: Male

DRUGS (6)
  1. HYDROPHILIC PETROLATUM. [Suspect]
     Active Substance: HYDROPHILIC PETROLATUM
     Indication: PEMPHIGUS
     Route: 061
  2. CICLOSPORIN [Concomitant]
     Active Substance: CYCLOSPORINE
     Indication: PEMPHIGUS
     Route: 065
  3. IMMUNE GLOBULIN IV [Concomitant]
     Active Substance: HUMAN IMMUNOGLOBULIN G
     Indication: PEMPHIGUS
     Dosage: ADMINISTERED SEVEN TIMES
     Route: 042
  4. PREDNISOLONE. [Suspect]
     Active Substance: PREDNISOLONE
     Indication: PEMPHIGUS
     Dosage: 25 MILLIGRAM, QD
     Route: 048
  5. PREDNISOLONE. [Suspect]
     Active Substance: PREDNISOLONE
     Dosage: UPTO 60MG/DAY
     Route: 048
  6. METHYLPREDNISOLONE. [Suspect]
     Active Substance: METHYLPREDNISOLONE
     Indication: PEMPHIGUS
     Dosage: 1000 MILLIGRAM, QD, ADMINISTERED TWICE AS PULSE THERAPY FOR THREE CONSECUTIVE DAYS.
     Route: 065

REACTIONS (2)
  - Drug ineffective [Unknown]
  - Steroid diabetes [Unknown]
